FAERS Safety Report 7417217-4 (Version None)
Quarter: 2011Q2

REPORT INFORMATION
  Report Type: 
  Country: None (occurrence: None)
  Receive Date: 20110415
  Receipt Date: 20110224
  Transmission Date: 20111010
  Serious: Yes (Other)
  Sender: FDA-Public Use
  Company Number: US-BAYER-201041437NA

PATIENT
  Age: 40 Year
  Sex: Female
  Weight: 125.17 kg

DRUGS (9)
  1. YASMIN [Suspect]
     Indication: ACNE
  2. SYNTHROID [Concomitant]
     Dosage: 0.2 MG, QD
  3. YAZ [Suspect]
     Indication: CONTRACEPTION
  4. NEXIUM [Concomitant]
  5. YAZ [Suspect]
     Indication: ACNE
  6. OCELLA [Suspect]
     Indication: ACNE
  7. METFORMIN [Concomitant]
  8. YASMIN [Suspect]
     Indication: CONTRACEPTION
  9. OCELLA [Suspect]
     Indication: CONTRACEPTION

REACTIONS (3)
  - INJURY [None]
  - CHOLELITHIASIS [None]
  - CHOLECYSTITIS [None]
